FAERS Safety Report 9027807 (Version 2)
Quarter: 2013Q1

REPORT INFORMATION
  Report Type: Spontaneous
  Country: US (occurrence: US)
  Receive Date: 20130124
  Receipt Date: 20130213
  Transmission Date: 20140127
  Serious: Yes (Other)
  Sender: FDA-Public Use
  Company Number: US-JNJFOC-20130108763

PATIENT
  Age: 41 Year
  Sex: Male
  Weight: 86.18 kg

DRUGS (1)
  1. STELARA [Suspect]
     Indication: PSORIASIS
     Route: 058
     Dates: start: 20111110, end: 20121127

REACTIONS (1)
  - Basal cell carcinoma [Not Recovered/Not Resolved]
